FAERS Safety Report 23546041 (Version 15)
Quarter: 2024Q4

REPORT INFORMATION
  Report Type: Report from Study
  Country: BG (occurrence: BG)
  Receive Date: 20240220
  Receipt Date: 20241015
  Transmission Date: 20250115
  Serious: Yes (Hospitalization, Other)
  Sender: AKCEA THERAPEUTICS
  Company Number: BG-AKCEA THERAPEUTICS, INC.-2024IS001498

PATIENT

DRUGS (4)
  1. TEGSEDI [Suspect]
     Active Substance: INOTERSEN SODIUM
     Indication: Hereditary neuropathic amyloidosis
     Dosage: 284 MILLIGRAM, QW
     Route: 058
     Dates: start: 20240216
  2. TEGSEDI [Suspect]
     Active Substance: INOTERSEN SODIUM
     Dosage: 284 MILLIGRAM, QOW
     Route: 058
     Dates: start: 20240122, end: 20240215
  3. TEGSEDI [Suspect]
     Active Substance: INOTERSEN SODIUM
     Dosage: 284 MILLIGRAM, QW
     Route: 058
     Dates: start: 20230301
  4. TRIFAS [TORASEMIDE SODIUM] [Concomitant]
     Indication: Product used for unknown indication
     Dosage: UNK, 1 TABLET QD
     Route: 065
     Dates: start: 202403

REACTIONS (17)
  - Haematuria [Recovered/Resolved]
  - Proteinuria [Not Recovered/Not Resolved]
  - Urine protein/creatinine ratio increased [Not Recovered/Not Resolved]
  - Bladder catheterisation [Unknown]
  - Prostatic disorder [Unknown]
  - Platelet count decreased [Recovered/Resolved]
  - Blood creatinine decreased [Recovered/Resolved]
  - Creatinine urine decreased [Recovered/Resolved]
  - Neutrophil percentage increased [Recovered/Resolved]
  - Lymphocyte percentage decreased [Recovered/Resolved]
  - Oedema [Unknown]
  - Blood pressure increased [Recovered/Resolved]
  - Peripheral swelling [Not Recovered/Not Resolved]
  - Visual impairment [Unknown]
  - Tremor [Unknown]
  - Middle insomnia [Unknown]
  - Plateletcrit decreased [Recovered/Resolved]

NARRATIVE: CASE EVENT DATE: 20240109
